FAERS Safety Report 9719192 (Version 1)
Quarter: 2013Q4

REPORT INFORMATION
  Report Type: Spontaneous
  Country: GB (occurrence: GB)
  Receive Date: 20131127
  Receipt Date: 20131127
  Transmission Date: 20140711
  Serious: Yes (Death)
  Sender: FDA-Public Use
  Company Number: PHHY2013GB133615

PATIENT
  Sex: 0

DRUGS (12)
  1. DIAZEPAM [Suspect]
     Indication: ANXIETY
     Dosage: 2.5 MG, QD
     Route: 048
     Dates: start: 2007
  2. PAROXETINE [Suspect]
     Indication: DEPRESSED MOOD
     Dosage: 20 MG, QD
     Route: 048
  3. ZAPONEX [Suspect]
     Indication: SCHIZOPHRENIA
     Route: 048
     Dates: start: 20041112, end: 200702
  4. ZAPONEX [Suspect]
     Dosage: 550 MG, QD IN NIGHT
     Route: 048
     Dates: start: 20070219, end: 20130507
  5. HYOSCINE [Suspect]
     Indication: SALIVARY HYPERSECRETION
     Dosage: 300 UG, BID
     Route: 048
  6. EPILIM [Suspect]
     Dosage: 200 MG, BID
     Route: 048
     Dates: start: 2007
  7. ZOPICLONE [Interacting]
     Indication: INSOMNIA
     Dosage: 3.75 MG, QD IN NIGHT
     Route: 048
     Dates: start: 2007
  8. ETHANOL [Interacting]
     Route: 048
  9. LANSOPRAZOLE [Concomitant]
     Indication: ABDOMINAL PAIN UPPER
     Dosage: 30 MG, QD
     Route: 048
  10. DOCUSATE SODIUM\SENNOSIDES [Concomitant]
     Indication: CONSTIPATION
     Dosage: 2 DF, QD
     Route: 048
  11. PROCYCLIDINE [Concomitant]
     Indication: EXTRAPYRAMIDAL DISORDER
     Dosage: 5 MG, BID
     Route: 048
     Dates: start: 2007
  12. CO-CODAMOL [Concomitant]
     Indication: BACK PAIN
     Dates: start: 201304

REACTIONS (7)
  - Toxicity to various agents [Fatal]
  - Pulmonary oedema [Not Recovered/Not Resolved]
  - Gastritis erosive [Not Recovered/Not Resolved]
  - Arteriosclerosis [Not Recovered/Not Resolved]
  - Drug interaction [Not Recovered/Not Resolved]
  - Lower respiratory tract infection [Not Recovered/Not Resolved]
  - Alcohol interaction [Not Recovered/Not Resolved]
